FAERS Safety Report 8031934-7 (Version None)
Quarter: 2012Q1

REPORT INFORMATION
  Report Type: 
  Country: None (occurrence: None)
  Receive Date: 20120109
  Receipt Date: 20110317
  Transmission Date: 20120608
  Serious: No
  Sender: FDA-Public Use
  Company Number: US-ABBOTT-11P-163-0712510-00

PATIENT
  Sex: Female

DRUGS (5)
  1. VICODIN [Suspect]
     Indication: PAIN
  2. MOTRIN [Suspect]
     Indication: PAIN
  3. LANTUS [Suspect]
     Indication: PRODUCT USED FOR UNKNOWN INDICATION
  4. LANTUS [Concomitant]
     Dosage: LOT: 05573A/ EXP DATE: 30 JUL 2013
     Route: 058
  5. LANTUS [Concomitant]
     Route: 051

REACTIONS (1)
  - BLOOD GLUCOSE INCREASED [None]
